FAERS Safety Report 4719110-4 (Version None)
Quarter: 2005Q3

REPORT INFORMATION
  Report Type: 
  Country: None (occurrence: None)
  Receive Date: 20050719
  Receipt Date: 20050704
  Transmission Date: 20060218
  Serious: Yes (Hospitalization)
  Sender: FDA-Public Use
  Company Number: 2005-0008475

PATIENT
  Age: 44 Year
  Sex: Male
  Weight: 72 kg

DRUGS (5)
  1. VIREAD [Suspect]
     Dosage: 1 DOSAGE FORMS, 1 IN 1 D, ORAL
     Route: 048
  2. INVIRASE [Suspect]
     Dosage: 8 DOSAGE FORMS, 1 IN 1 D, ORAL
     Route: 048
  3. NORVIR [Suspect]
     Dosage: 200 MG, 1 IN 1 D, ORAL
     Route: 048
  4. KALETRA [Suspect]
     Dosage: 8 DOSAGE FORMS, 1 IN 1 D, ORAL
     Route: 048
  5. BACTRIM [Concomitant]

REACTIONS (3)
  - ANGINA UNSTABLE [None]
  - CORONARY ARTERY ATHEROSCLEROSIS [None]
  - CORONARY ARTERY STENOSIS [None]
